FAERS Safety Report 24313505 (Version 2)
Quarter: 2024Q3

REPORT INFORMATION
  Report Type: Spontaneous
  Country: US (occurrence: US)
  Receive Date: 20240912
  Receipt Date: 20240918
  Transmission Date: 20241016
  Serious: No
  Sender: KYOWA
  Company Number: US-KYOWAKIRIN-2024KK021124

PATIENT

DRUGS (1)
  1. CRYSVITA [Suspect]
     Active Substance: BUROSUMAB-TWZA
     Indication: Phosphorus metabolism disorder
     Dosage: 40 MG, 1X/4 WEEKS
     Route: 058

REACTIONS (3)
  - Vitamin D abnormal [Unknown]
  - Product use in unapproved indication [Unknown]
  - Product dose omission issue [Unknown]
